FAERS Safety Report 11496286 (Version 1)
Quarter: 2015Q3

REPORT INFORMATION
  Report Type: Report from Study
  Country: HU (occurrence: HU)
  Receive Date: 20150911
  Receipt Date: 20150911
  Transmission Date: 20151125
  Serious: Yes (Death, Hospitalization)
  Sender: FDA-Public Use
  Company Number: PHHY2015HU091744

PATIENT
  Sex: Male

DRUGS (3)
  1. ONBREZ BREEZHALER [Suspect]
     Active Substance: INDACATEROL
     Indication: DYSPNOEA
     Dosage: UNK
     Route: 055
     Dates: start: 20150401
  2. SEEBRI BREEZHALER [Suspect]
     Active Substance: GLYCOPYRROLATE
     Indication: CHRONIC OBSTRUCTIVE PULMONARY DISEASE
     Dosage: UNK
     Route: 055
     Dates: start: 20150401
  3. ONBREZ BREEZHALER [Suspect]
     Active Substance: INDACATEROL
     Indication: CHRONIC OBSTRUCTIVE PULMONARY DISEASE

REACTIONS (9)
  - Fibrosis [Fatal]
  - Pneumonia [Fatal]
  - Phlebitis [Fatal]
  - Interstitial lung disease [Fatal]
  - Haemoglobin decreased [Unknown]
  - Bronchiectasis [Fatal]
  - Haematocrit decreased [Unknown]
  - Lung neoplasm malignant [Fatal]
  - Pulmonary embolism [Fatal]
